FAERS Safety Report 5817993-8 (Version None)
Quarter: 2008Q3

REPORT INFORMATION
  Report Type: 
  Country: None (occurrence: None)
  Receive Date: 20080722
  Receipt Date: 20070723
  Transmission Date: 20090109
  Serious: Yes (Other)
  Sender: FDA-Public Use
  Company Number: US-BAYER-US-2007-027392

PATIENT
  Sex: Male

DRUGS (3)
  1. MAGNEVIST [Suspect]
     Indication: ARTHROGRAM
     Route: 014
  2. RENOGRAFIN 60% [Concomitant]
  3. LIDOCAINE [Concomitant]

REACTIONS (5)
  - CHEST DISCOMFORT [None]
  - DIZZINESS [None]
  - LOSS OF CONSCIOUSNESS [None]
  - NAUSEA [None]
  - RASH [None]
